FAERS Safety Report 4340805-9 (Version None)
Quarter: 2004Q2

REPORT INFORMATION
  Report Type: 
  Country: None (occurrence: None)
  Receive Date: 20040419
  Receipt Date: 20030314
  Transmission Date: 20050107
  Serious: No
  Sender: FDA-Public Use
  Company Number: US-GLAXOSMITHKLINE-A0400605A

PATIENT
  Sex: Female

DRUGS (2)
  1. ESKALITH [Suspect]
     Indication: ILL-DEFINED DISORDER
     Route: 048
  2. LITHOBID [Concomitant]
     Route: 065

REACTIONS (6)
  - DIARRHOEA [None]
  - DRUG WITHDRAWAL SYNDROME [None]
  - FEELING ABNORMAL [None]
  - HEADACHE [None]
  - SINUS DISORDER [None]
  - TREMOR [None]
